FAERS Safety Report 4414395-6 (Version None)
Quarter: 2004Q3

REPORT INFORMATION
  Report Type: 
  Country: None (occurrence: None)
  Receive Date: 20040701
  Receipt Date: 20030922
  Transmission Date: 20050211
  Serious: Yes (Hospitalization)
  Sender: FDA-Public Use
  Company Number: VISP-PR-0309C-0264(0)

PATIENT
  Age: 82 Year
  Sex: Male
  Weight: 89.3586 kg

DRUGS (25)
  1. VISIPAQUE [Suspect]
     Indication: CORONARY ARTERY DISEASE
     Dosage: 245 ML, SINGLE DOSE, I.A.
     Dates: start: 20030919, end: 20030919
  2. OPTIRAY 160 [Suspect]
     Indication: CORONARY ARTERY DISEASE
     Dosage: 245 ML, SINGLE DOSE, I.A.
     Dates: start: 20030919, end: 20030919
  3. ACETYLCYSTEINE [Concomitant]
  4. SODIUM CHLORIDE INJ [Concomitant]
  5. SYNTHROID [Concomitant]
  6. TENORMIN [Concomitant]
  7. LOVASTATIN [Concomitant]
  8. SALBUTAMOL (ALBUTEROL) [Concomitant]
  9. ALOPURINOL [Concomitant]
  10. LISINOPRIL [Concomitant]
  11. WARFARIN SODIUM [Concomitant]
  12. MIDAZOLAM HYDROCHLORIDE [Concomitant]
  13. FENTANYL [Concomitant]
  14. NITROGLYCERINE DRIP [Concomitant]
  15. HEPARIN [Concomitant]
  16. ASPIRIN [Concomitant]
  17. PLAVIX [Concomitant]
  18. MORPHINE SULFATE [Concomitant]
  19. ABCIXIMAB [Concomitant]
  20. RABEPRAZOLE SODIUM [Concomitant]
  21. FUROSEMIDE [Concomitant]
  22. TRAZODONE HCL [Concomitant]
  23. HALOPERIDOL [Concomitant]
  24. VICODIN [Concomitant]
  25. IPRATROPIUM BROMIDE (ATROVENT) [Concomitant]

REACTIONS (1)
  - ACUTE MYOCARDIAL INFARCTION [None]
